FAERS Safety Report 13950270 (Version 2)
Quarter: 2017Q4

REPORT INFORMATION
  Report Type: Spontaneous
  Country: US (occurrence: US)
  Receive Date: 20170908
  Receipt Date: 20171012
  Transmission Date: 20180320
  Serious: Yes (Hospitalization)
  Sender: FDA-Public Use
  Company Number: US-ALLERGAN-1746730US

PATIENT
  Age: 58 Year
  Sex: Female

DRUGS (1)
  1. ARMOUR THYROID [Suspect]
     Active Substance: THYROID, PORCINE
     Indication: HYPOTHYROIDISM
     Dosage: 180 MG, QD
     Route: 048

REACTIONS (8)
  - Bedridden [Unknown]
  - Alopecia [Unknown]
  - Decreased activity [Unknown]
  - Hypersomnia [Unknown]
  - Weight increased [Unknown]
  - Constipation [Unknown]
  - Cardiac disorder [Unknown]
  - Overdose [Unknown]

NARRATIVE: CASE EVENT DATE: 2016
